FAERS Safety Report 6027180-9 (Version None)
Quarter: 2009Q1

REPORT INFORMATION
  Report Type: 
  Country: None (occurrence: None)
  Receive Date: 20090105
  Receipt Date: 20081224
  Transmission Date: 20090719
  Serious: Yes (Other)
  Sender: FDA-Public Use
  Company Number: US-PFIZER INC-2008091538

PATIENT
  Age: 7 Year
  Sex: Male
  Weight: 66.2 kg

DRUGS (9)
  1. LYRICA [Suspect]
     Indication: RESTLESS LEGS SYNDROME
     Dosage: 50 MG, 3X/DAY
     Route: 048
     Dates: start: 20080908, end: 20081022
  2. LEXAPRO [Concomitant]
  3. ATIVAN [Concomitant]
  4. CADUET [Concomitant]
  5. DARVOCET [Concomitant]
  6. AVANDAMET [Concomitant]
  7. REGLAN [Concomitant]
  8. CARBIDOPA AND LEVODOPA [Concomitant]
  9. LEVODOPA [Concomitant]

REACTIONS (1)
  - TARDIVE DYSKINESIA [None]
